FAERS Safety Report 9748184 (Version 3)
Quarter: 2016Q3

REPORT INFORMATION
  Report Type: Spontaneous
  Country: US (occurrence: US)
  Receive Date: 20131212
  Receipt Date: 20160801
  Transmission Date: 20161109
  Serious: No
  Sender: FDA-Public Use
  Company Number: US-PFIZER INC-2013353339

PATIENT
  Age: 63 Year
  Sex: Female

DRUGS (4)
  1. CHANTIX [Suspect]
     Active Substance: VARENICLINE TARTRATE
     Dosage: UNK
  2. DARVOCET-N 100 [Suspect]
     Active Substance: ACETAMINOPHEN\PROPOXYPHENE NAPSYLATE
     Dosage: UNK
  3. AMLODIPINE BESILATE [Suspect]
     Active Substance: AMLODIPINE BESYLATE
     Dosage: UNK
  4. SULFUR. [Suspect]
     Active Substance: SULFUR
     Dosage: UNK

REACTIONS (1)
  - Drug hypersensitivity [Unknown]
